FAERS Safety Report 6654541-7 (Version None)
Quarter: 2010Q1

REPORT INFORMATION
  Report Type: 
  Country: None (occurrence: None)
  Receive Date: 20100326
  Receipt Date: 20100315
  Transmission Date: 20100710
  Serious: Yes (Hospitalization, Disabling, Other)
  Sender: FDA-Public Use
  Company Number: US-PFIZER INC-2010003848

PATIENT
  Sex: Female

DRUGS (2)
  1. GEODON [Suspect]
     Indication: PSYCHOTIC DISORDER
     Dosage: UNK
     Dates: start: 20060101
  2. CYMBALTA [Suspect]
     Dosage: 60 MG, 3X/DAY
     Route: 048
     Dates: start: 20080301, end: 20090101

REACTIONS (12)
  - ACTIVITIES OF DAILY LIVING IMPAIRED [None]
  - ANXIETY [None]
  - BEDRIDDEN [None]
  - DEPRESSION [None]
  - DRUG INEFFECTIVE [None]
  - FEELING ABNORMAL [None]
  - MALAISE [None]
  - MEDICATION ERROR [None]
  - OVERDOSE [None]
  - PAIN IN EXTREMITY [None]
  - SUICIDAL IDEATION [None]
  - WITHDRAWAL SYNDROME [None]
